FAERS Safety Report 21785946 (Version 1)
Quarter: 2022Q4

REPORT INFORMATION
  Report Type: Spontaneous
  Country: US (occurrence: US)
  Receive Date: 20221228
  Receipt Date: 20221228
  Transmission Date: 20230113
  Serious: Yes (Other)
  Sender: FDA-Public Use
  Company Number: US-drreddys-LIT/USA/22/0158968

PATIENT
  Age: 3 Year
  Sex: Male

DRUGS (8)
  1. DOXORUBICIN HYDROCHLORIDE [Suspect]
     Active Substance: DOXORUBICIN HYDROCHLORIDE
     Indication: Fibrosarcoma metastatic
     Dosage: FIVE CYCLES (21 DAYS)
  2. DOCETAXEL [Suspect]
     Active Substance: DOCETAXEL
     Indication: Fibrosarcoma metastatic
  3. GEMCITABINE [Suspect]
     Active Substance: GEMCITABINE
     Indication: Fibrosarcoma metastatic
  4. IFOSFAMIDE [Suspect]
     Active Substance: IFOSFAMIDE
     Indication: Fibrosarcoma metastatic
     Dosage: FIVE CYCLES (21 DAYS)
  5. PAZOPANIB [Suspect]
     Active Substance: PAZOPANIB
     Indication: Fibrosarcoma metastatic
  6. TRABECTEDIN [Suspect]
     Active Substance: TRABECTEDIN
     Indication: Fibrosarcoma metastatic
  7. VINCRISTINE [Suspect]
     Active Substance: VINCRISTINE
     Indication: Fibrosarcoma metastatic
  8. CYCLOPHOSPHAMIDE [Suspect]
     Active Substance: CYCLOPHOSPHAMIDE
     Indication: Fibrosarcoma metastatic

REACTIONS (6)
  - Metastases to meninges [Unknown]
  - Eye pain [Unknown]
  - Nausea [Unknown]
  - Headache [Unknown]
  - Vomiting [Unknown]
  - Drug ineffective for unapproved indication [Unknown]
